FAERS Safety Report 13801188 (Version 2)
Quarter: 2017Q3

REPORT INFORMATION
  Report Type: Spontaneous
  Country: US (occurrence: US)
  Receive Date: 20170727
  Receipt Date: 20170731
  Transmission Date: 20171127
  Serious: No
  Sender: FDA-Public Use
  Company Number: US-PFIZER INC-2017324776

PATIENT
  Age: 62 Year
  Sex: Female

DRUGS (1)
  1. GABAPENTIN. [Suspect]
     Active Substance: GABAPENTIN

REACTIONS (6)
  - Memory impairment [Unknown]
  - Dizziness [Unknown]
  - Arthropathy [Unknown]
  - Drug hypersensitivity [Unknown]
  - Feeling abnormal [Unknown]
  - Lethargy [Unknown]
